FAERS Safety Report 16217354 (Version 1)
Quarter: 2019Q2

REPORT INFORMATION
  Report Type: Spontaneous
  Country: US (occurrence: US)
  Receive Date: 20190419
  Receipt Date: 20190419
  Transmission Date: 20190711
  Serious: No
  Sender: FDA-Public Use
  Company Number: US-PFIZER INC-2019042552

PATIENT
  Age: 36 Year
  Sex: Male

DRUGS (2)
  1. DILANTIN [Suspect]
     Active Substance: PHENYTOIN
     Indication: EPILEPSY
     Dosage: 700 MG, DAILY (100 MG/ SIG: 3 QAM, 4 QPM)
  2. DILANTIN [Suspect]
     Active Substance: PHENYTOIN
     Dosage: UNK (QUANTITY FOR 90 DAYS: #360)

REACTIONS (2)
  - Prescribed overdose [Unknown]
  - Drug ineffective [Unknown]
